FAERS Safety Report 25058370 (Version 1)
Quarter: 2025Q1

REPORT INFORMATION
  Report Type: Spontaneous
  Country: US (occurrence: US)
  Receive Date: 20250310
  Receipt Date: 20250310
  Transmission Date: 20250408
  Serious: No
  Sender: PFIZER
  Company Number: US-PFIZER INC-202500049554

PATIENT
  Age: 71 Year
  Sex: Female

DRUGS (21)
  1. IBRANCE [Suspect]
     Active Substance: PALBOCICLIB
     Route: 048
     Dates: start: 20250221
  2. FULVESTRANT [Suspect]
     Active Substance: FULVESTRANT
  3. ACETAMINOPHEN [Concomitant]
     Active Substance: ACETAMINOPHEN
  4. CALCIUM [Concomitant]
     Active Substance: CALCIUM
  5. ESCITALOPRAM [Concomitant]
     Active Substance: ESCITALOPRAM OXALATE
  6. FAMOTIDINE [Concomitant]
     Active Substance: FAMOTIDINE
  7. LIDOCAINE [Concomitant]
     Active Substance: LIDOCAINE
  8. IBUPROFEN [Concomitant]
     Active Substance: IBUPROFEN
  9. KETOCONAZOLE [Concomitant]
     Active Substance: KETOCONAZOLE
  10. PROBIOTICS NOS [Concomitant]
     Active Substance: PROBIOTICS NOS
  11. LIDOCAINE [Concomitant]
     Active Substance: LIDOCAINE
  12. LORATADINE [Concomitant]
     Active Substance: LORATADINE
  13. MAGNESIUM [Concomitant]
     Active Substance: MAGNESIUM
  14. MELATONIN [Concomitant]
     Active Substance: MELATONIN
  15. MIRTAZAPINE [Concomitant]
     Active Substance: MIRTAZAPINE
  16. OMEGA-3 FATTY ACIDS [Concomitant]
     Active Substance: OMEGA-3 FATTY ACIDS
  17. MIRALAX [Concomitant]
     Active Substance: POLYETHYLENE GLYCOL 3350
  18. THEANINE [Concomitant]
     Active Substance: THEANINE
  19. ONDANSETRON [Concomitant]
     Active Substance: ONDANSETRON
  20. PROCHLORPERAZINE [Concomitant]
     Active Substance: PROCHLORPERAZINE
  21. .ALPHA.-TOCOPHEROL [Concomitant]
     Active Substance: .ALPHA.-TOCOPHEROL

REACTIONS (1)
  - Back pain [Not Recovered/Not Resolved]
